FAERS Safety Report 9253270 (Version 1)
Quarter: 2013Q2

REPORT INFORMATION
  Report Type: Spontaneous
  Country: FR (occurrence: FR)
  Receive Date: 20130424
  Receipt Date: 20130424
  Transmission Date: 20140414
  Serious: Yes (Hospitalization, Other)
  Sender: FDA-Public Use
  Company Number: FR-ELI_LILLY_AND_COMPANY-FR201301007064

PATIENT
  Age: 67 Year
  Sex: Male

DRUGS (7)
  1. EFIENT [Suspect]
     Indication: STENT PLACEMENT
     Dosage: 10 MG, UNK
     Route: 048
     Dates: start: 20121105
  2. KARDEGIC [Concomitant]
     Indication: STENT PLACEMENT
     Dosage: 75 MG, UNK
     Dates: start: 20121105
  3. TAHOR [Concomitant]
     Dosage: 80 MG, UNK
  4. CARDENSIEL [Concomitant]
     Dosage: 5 MG, UNK
  5. COVERSYL [Concomitant]
     Dosage: 5 MG, UNK
  6. NATISPRAY [Concomitant]
  7. XATRAL [Concomitant]
     Dosage: 10 MG, UNK

REACTIONS (6)
  - Cystitis noninfective [Recovered/Resolved]
  - Haematuria [Recovered/Resolved]
  - Dysuria [Recovered/Resolved]
  - Oliguria [Recovered/Resolved]
  - Abdominal pain [Unknown]
  - Proteinuria [Recovered/Resolved]
